FAERS Safety Report 7216101-9 (Version None)
Quarter: 2011Q1

REPORT INFORMATION
  Report Type: 
  Country: None (occurrence: None)
  Receive Date: 20110107
  Receipt Date: 20110104
  Transmission Date: 20110831
  Serious: Yes (Hospitalization, Other)
  Sender: FDA-Public Use
  Company Number: CA-ABBOTT-10P-028-0680377-00

PATIENT
  Sex: Male
  Weight: 65.83 kg

DRUGS (4)
  1. HUMIRA [Suspect]
     Indication: CROHN'S DISEASE
     Route: 058
     Dates: start: 20090308
  2. HERBAL THINGS [Concomitant]
     Indication: PHYTOTHERAPY
     Route: 048
  3. IMURAN [Concomitant]
     Indication: CROHN'S DISEASE
     Route: 048
  4. MULTI-VITAMIN [Concomitant]
     Indication: VITAMIN SUPPLEMENTATION
     Route: 048

REACTIONS (5)
  - ULCER HAEMORRHAGE [None]
  - HAEMATOCHEZIA [None]
  - POST PROCEDURAL HAEMORRHAGE [None]
  - PROCEDURAL PAIN [None]
  - CROHN'S DISEASE [None]
